FAERS Safety Report 19134425 (Version 3)
Quarter: 2021Q2

REPORT INFORMATION
  Report Type: Report from Study
  Country: AR (occurrence: AR)
  Receive Date: 20210414
  Receipt Date: 20210503
  Transmission Date: 20210717
  Serious: Yes (Hospitalization)
  Sender: FDA-Public Use
  Company Number: AR-INCYTE CORPORATION-2021IN003284

PATIENT

DRUGS (4)
  1. ERYTHROPOIETIN [Concomitant]
     Active Substance: ERYTHROPOIETIN
     Dosage: 30 THOUSAND UNITS, QW
     Route: 065
  2. ERYTHROPOIETIN [Concomitant]
     Active Substance: ERYTHROPOIETIN
     Indication: PRODUCT USED FOR UNKNOWN INDICATION
     Dosage: 20 THOUSAND UNITS, QW
     Route: 065
     Dates: start: 20210406
  3. JAKAVI [Suspect]
     Active Substance: RUXOLITINIB
     Indication: MYELOFIBROSIS
     Dosage: 30 MG, DAILY
     Route: 048
     Dates: start: 20201215
  4. JAKAVI [Suspect]
     Active Substance: RUXOLITINIB
     Dosage: 40 MG, DAILY (2X20 MG)
     Route: 048

REACTIONS (11)
  - Stress [Recovered/Resolved]
  - Malaise [Unknown]
  - Asthenia [Unknown]
  - Cognitive disorder [Unknown]
  - Confusional state [Recovered/Resolved]
  - Splenomegaly [Unknown]
  - Red blood cell count increased [Unknown]
  - Anaemia [Recovering/Resolving]
  - Clumsiness [Unknown]
  - Pyrexia [Unknown]
  - Dehydration [Recovered/Resolved]
